FAERS Safety Report 9784431 (Version 2)
Quarter: 2013Q4

REPORT INFORMATION
  Report Type: Spontaneous
  Country: CA (occurrence: CA)
  Receive Date: 20131226
  Receipt Date: 20131226
  Transmission Date: 20140711
  Serious: Yes (Hospitalization, Other)
  Sender: FDA-Public Use
  Company Number: CA-BAXTER-2013BAX050667

PATIENT
  Age: 62 Year
  Sex: Male

DRUGS (5)
  1. DIANEAL PD4 SOLUTION WITH 2.5% DEXTROSE AND 2.5 MEQ/L CALCIUM [Suspect]
     Indication: PERITONEAL DIALYSIS
     Route: 033
     Dates: start: 2006
  2. DIANEAL PD4 SOLUTION WITH 2.5% DEXTROSE AND 2.5 MEQ/L CALCIUM [Suspect]
     Indication: GLOMERULONEPHRITIS
  3. DIANEAL PD4 SOLUTION WITH 4.25% DEXTROSE AND 2.5 MEQ/L CALCIUM [Suspect]
     Indication: PERITONEAL DIALYSIS
     Route: 033
     Dates: start: 2006
  4. DIANEAL PD4 SOLUTION WITH 4.25% DEXTROSE AND 2.5 MEQ/L CALCIUM [Suspect]
     Indication: GLOMERULONEPHRITIS
  5. HEPARIN [Concomitant]
     Indication: PROPHYLAXIS
     Route: 033

REACTIONS (4)
  - Pneumonia [Recovered/Resolved]
  - Coronary artery occlusion [Unknown]
  - Peritonitis bacterial [Recovered/Resolved]
  - Device related infection [Recovered/Resolved]
